FAERS Safety Report 4342783-5 (Version None)
Quarter: 2004Q2

REPORT INFORMATION
  Report Type: 
  Country: None (occurrence: None)
  Receive Date: 20040416
  Receipt Date: 20040407
  Transmission Date: 20050107
  Serious: Yes (Death)
  Sender: FDA-Public Use
  Company Number: 163-20785-04020732

PATIENT
  Age: 66 Year
  Sex: Female

DRUGS (3)
  1. THALOMID [Suspect]
     Indication: NAUSEA
     Dosage: 100 MG, QHS, ORAL
     Route: 048
     Dates: start: 20020827, end: 20031008
  2. THALOMID [Suspect]
     Indication: OVARIAN CANCER METASTATIC
     Dosage: 100 MG, QHS, ORAL
     Route: 048
     Dates: start: 20020827, end: 20031008
  3. THALOMID [Suspect]
     Indication: SLEEP DISORDER
     Dosage: 100 MG, QHS, ORAL
     Route: 048
     Dates: start: 20020827, end: 20031008

REACTIONS (3)
  - MALIGNANT NEOPLASM PROGRESSION [None]
  - OVARIAN CANCER [None]
  - RESPIRATORY FAILURE [None]
